FAERS Safety Report 14150686 (Version 1)
Quarter: 2017Q4

REPORT INFORMATION
  Report Type: Spontaneous
  Country: US (occurrence: US)
  Receive Date: 20171101
  Receipt Date: 20171101
  Transmission Date: 20180321
  Serious: Yes (Other)
  Sender: FDA-Public Use
  Company Number: US-BEH-2017084672

PATIENT
  Sex: Female
  Weight: 76.19 kg

DRUGS (20)
  1. VITAMIN D                          /00107901/ [Concomitant]
     Active Substance: ERGOCALCIFEROL
  2. HIZENTRA [Suspect]
     Active Substance: HUMAN IMMUNOGLOBULIN G
     Indication: IMMUNODEFICIENCY COMMON VARIABLE
     Dosage: 10 G, QW
     Route: 058
     Dates: start: 20170626
  3. SYNTHROID [Concomitant]
     Active Substance: LEVOTHYROXINE SODIUM
  4. TORSEMIDE. [Concomitant]
     Active Substance: TORSEMIDE
  5. LUTEIN                             /01638501/ [Concomitant]
     Active Substance: LUTEIN
  6. POTASSIUM [Concomitant]
     Active Substance: POTASSIUM
  7. MOBIC [Concomitant]
     Active Substance: MELOXICAM
  8. AMLODIPINE BESILATE [Concomitant]
     Active Substance: AMLODIPINE BESYLATE
  9. CALCIUM +D                         /00944201/ [Concomitant]
     Active Substance: CALCIUM CARBONATE\CHOLECALCIFEROL
  10. HIZENTRA [Suspect]
     Active Substance: HUMAN IMMUNOGLOBULIN G
     Dosage: UNK
     Route: 058
     Dates: start: 20170626
  11. CLARINEX                           /01202601/ [Concomitant]
     Active Substance: LORATADINE\PSEUDOEPHEDRINE SULFATE
  12. DICYCLOMINE                        /00068601/ [Concomitant]
     Active Substance: DICYCLOMINE HYDROCHLORIDE
  13. PRADAXA [Concomitant]
     Active Substance: DABIGATRAN ETEXILATE MESYLATE
  14. SINGULAIR [Concomitant]
     Active Substance: MONTELUKAST SODIUM
  15. MAGNESIUM [Concomitant]
     Active Substance: MAGNESIUM
  16. MULTIVITAMIN                       /00097801/ [Concomitant]
     Active Substance: VITAMINS
  17. BIOTIN [Concomitant]
     Active Substance: BIOTIN
  18. PROTONIX [Concomitant]
     Active Substance: PANTOPRAZOLE SODIUM
  19. AVAPRO [Concomitant]
     Active Substance: IRBESARTAN
  20. TOPROL XL [Concomitant]
     Active Substance: METOPROLOL SUCCINATE

REACTIONS (1)
  - Cardiac pacemaker battery replacement [Unknown]
